FAERS Safety Report 10450782 (Version 2)
Quarter: 2014Q3

REPORT INFORMATION
  Report Type: Spontaneous
  Country: US (occurrence: None)
  Receive Date: 20140910
  Receipt Date: 20140925
  Transmission Date: 20150326
  Serious: Yes (Hospitalization)
  Sender: FDA-Public Use
  Company Number: 1713747-2014-999133

PATIENT
  Age: 61 Year
  Sex: Female
  Weight: 74 kg

DRUGS (20)
  1. DELFLEX WITH DEXTROSE 2.5% LOW MAGNESIUM [Suspect]
     Active Substance: CALCIUM CHLORIDE\DEXTROSE MONOHYDRATE\MAGNESIUM CHLORIDE\SODIUM CHLORIDE\SODIUM LACTATE
     Indication: PERITONEAL DIALYSIS
     Dosage: DAILY, IP
  2. RENVELA [Concomitant]
     Active Substance: SEVELAMER CARBONATE
  3. ZOCOR [Concomitant]
     Active Substance: SIMVASTATIN
  4. LEVEMIR [Concomitant]
     Active Substance: INSULIN DETEMIR
  5. PROAIR HFA [Concomitant]
     Active Substance: ALBUTEROL SULFATE
  6. RANITIDINE [Concomitant]
     Active Substance: RANITIDINE\RANITIDINE HYDROCHLORIDE
  7. NEWTON CYCLE [Concomitant]
  8. LEVOTHYROXINE [Concomitant]
     Active Substance: LEVOTHYROXINE
  9. NOVOLOG INSULIN [Concomitant]
  10. POTASSIUM CHLORIDE ER [Concomitant]
     Active Substance: POTASSIUM CHLORIDE
  11. NORVASC [Concomitant]
     Active Substance: AMLODIPINE BESYLATE
  12. SENSIPAR [Concomitant]
     Active Substance: CINACALCET HYDROCHLORIDE
  13. COMBIVENT [Concomitant]
     Active Substance: ALBUTEROL SULFATE\IPRATROPIUM BROMIDE
  14. EPOGEN [Concomitant]
     Active Substance: ERYTHROPOIETIN
  15. LIQUACEL [Concomitant]
  16. ZETIA [Concomitant]
     Active Substance: EZETIMIBE
  17. PREDNISONE. [Concomitant]
     Active Substance: PREDNISONE
  18. COREG [Concomitant]
     Active Substance: CARVEDILOL
  19. HECTOROL [Concomitant]
     Active Substance: DOXERCALCIFEROL
  20. SYMBICORT [Concomitant]
     Active Substance: BUDESONIDE\FORMOTEROL FUMARATE DIHYDRATE

REACTIONS (1)
  - Hyperkalaemia [None]

NARRATIVE: CASE EVENT DATE: 20140718
